FAERS Safety Report 5535381-9 (Version None)
Quarter: 2007Q4

REPORT INFORMATION
  Report Type: 
  Country: None (occurrence: None)
  Receive Date: 20071206
  Receipt Date: 20071123
  Transmission Date: 20080405
  Serious: Yes (Other)
  Sender: FDA-Public Use
  Company Number: US-PFIZER INC-2007085683

PATIENT
  Sex: Male
  Weight: 102.5 kg

DRUGS (39)
  1. CHANTIX [Suspect]
     Indication: SMOKING CESSATION THERAPY
     Dates: start: 20071004, end: 20071013
  2. PAXIL [Concomitant]
  3. PAXIL [Concomitant]
  4. FLEXERIL [Concomitant]
  5. FLEXERIL [Concomitant]
  6. IMITREX [Concomitant]
  7. IMITREX [Concomitant]
  8. ZESTRIL [Concomitant]
  9. ZESTRIL [Concomitant]
  10. VYTORIN [Concomitant]
     Dosage: TEXT:10MG/80MG
  11. VYTORIN [Concomitant]
  12. FLONASE [Concomitant]
  13. FLONASE [Concomitant]
  14. ALBUTEROL [Concomitant]
  15. ALBUTEROL [Concomitant]
  16. ADVAIR DISKUS 100/50 [Concomitant]
  17. ADVAIR DISKUS 100/50 [Concomitant]
  18. LASIX [Concomitant]
  19. LASIX [Concomitant]
  20. POTASSIUM CHLORIDE [Concomitant]
  21. POTASSIUM CHLORIDE [Concomitant]
  22. TRICOR [Concomitant]
  23. TRICOR [Concomitant]
  24. CIPROFLOXACIN [Concomitant]
  25. CIPROFLOXACIN [Concomitant]
  26. ALL OTHER THERAPEUTIC PRODUCTS [Concomitant]
  27. ALL OTHER THERAPEUTIC PRODUCTS [Concomitant]
  28. NEXIUM [Concomitant]
  29. NEXIUM [Concomitant]
  30. INSULIN [Concomitant]
  31. INSULIN [Concomitant]
  32. NOVOLIN 50/50 [Concomitant]
  33. NOVOLIN 50/50 [Concomitant]
  34. ETODOLAC [Concomitant]
  35. ETODOLAC [Concomitant]
  36. LORTAB [Concomitant]
     Dosage: TEXT:10
  37. LORTAB [Concomitant]
  38. HUMULIN 70/30 [Concomitant]
  39. SPIRIVA [Concomitant]

REACTIONS (1)
  - BLOOD GLUCOSE INCREASED [None]
